FAERS Safety Report 10411682 (Version 1)
Quarter: 2014Q3

REPORT INFORMATION
  Report Type: Spontaneous
  Country: US (occurrence: None)
  Receive Date: 20140826
  Receipt Date: 20140826
  Transmission Date: 20150326
  Serious: Yes (Death)
  Sender: FDA-Public Use
  Company Number: None

PATIENT
  Age: 49 Year
  Sex: Male
  Weight: 107.96 kg

DRUGS (10)
  1. PANTOPRAZOLE [Concomitant]
     Active Substance: PANTOPRAZOLE SODIUM
  2. FUROSEMIDE. [Concomitant]
     Active Substance: FUROSEMIDE
  3. SPIRONOLACTONE. [Concomitant]
     Active Substance: SPIRONOLACTONE
  4. VASOPRESSIN [Concomitant]
     Active Substance: VASOPRESSIN
  5. HYDRALAZINE [Concomitant]
     Active Substance: HYDRALAZINE HYDROCHLORIDE
  6. ENALAPRILAT. [Concomitant]
     Active Substance: ENALAPRILAT
  7. LACTULOSE. [Concomitant]
     Active Substance: LACTULOSE
  8. ERBITUX [Suspect]
     Active Substance: CETUXIMAB
     Indication: HEAD AND NECK CANCER
     Dosage: 864 MG ONE TIME INTRAVENOUS
     Route: 042
     Dates: start: 20140823, end: 20140823
  9. FENTANYL. [Concomitant]
     Active Substance: FENTANYL
  10. THIAMINE [Concomitant]
     Active Substance: THIAMINE

REACTIONS (4)
  - Anaphylactic reaction [None]
  - Infusion related reaction [None]
  - Pharyngeal haemorrhage [None]
  - Endotracheal intubation complication [None]

NARRATIVE: CASE EVENT DATE: 20140823
